FAERS Safety Report 15559957 (Version 1)
Quarter: 2018Q4

REPORT INFORMATION
  Report Type: Spontaneous
  Country: NG (occurrence: NG)
  Receive Date: 20181027
  Receipt Date: 20181027
  Transmission Date: 20190205
  Serious: No
  Sender: FDA-Public Use
  Company Number: None

PATIENT
  Age: 9 Month
  Sex: Female
  Weight: 10 kg

DRUGS (1)
  1. KENBARTH NYSTATIN ORAL SUSPENSION SUP 100,000IU/ML [Suspect]
     Active Substance: NYSTATIN
     Indication: ORAL CANDIDIASIS
     Dosage: ?          QUANTITY:6 DROP(S);?
     Route: 048
     Dates: start: 20181026, end: 20181027

REACTIONS (2)
  - Cough [None]
  - Rash [None]

NARRATIVE: CASE EVENT DATE: 20181027
